FAERS Safety Report 9742635 (Version 2)
Quarter: 2013Q4

REPORT INFORMATION
  Report Type: Spontaneous
  Country: US (occurrence: US)
  Receive Date: 20131210
  Receipt Date: 20131210
  Transmission Date: 20140711
  Serious: Yes (Other)
  Sender: FDA-Public Use
  Company Number: US-GILEAD-2009-0024490

PATIENT
  Sex: Male
  Weight: 93.89 kg

DRUGS (18)
  1. LETAIRIS [Suspect]
     Indication: PULMONARY ARTERIAL HYPERTENSION
     Route: 048
     Dates: start: 20090910, end: 20091029
  2. COUMADIN [Concomitant]
  3. METOLAZONE [Concomitant]
  4. PRINIVIL [Concomitant]
  5. COREG [Concomitant]
  6. LANOXIN [Concomitant]
  7. IMDUR [Concomitant]
  8. CARTEOLOL HCL [Concomitant]
  9. BUMEX [Concomitant]
  10. EPLERENONE [Concomitant]
  11. DARVON-N [Concomitant]
  12. ALLOPURINOL [Concomitant]
  13. XALANTAN [Concomitant]
  14. TYLENOL [Concomitant]
  15. LANTUS [Concomitant]
  16. KLOR-CON [Concomitant]
  17. VITAMIN D [Concomitant]
  18. SULFACETAMIDE [Concomitant]

REACTIONS (2)
  - Drug ineffective [Unknown]
  - Oedema [Unknown]
